FAERS Safety Report 5606110-5 (Version None)
Quarter: 2008Q1

REPORT INFORMATION
  Report Type: 
  Country: None (occurrence: None)
  Receive Date: 20080129
  Receipt Date: 20080115
  Transmission Date: 20080703
  Serious: Yes (Other)
  Sender: FDA-Public Use
  Company Number: CA-BAYER-200810293BCC

PATIENT
  Age: 59 Year
  Sex: Female

DRUGS (13)
  1. ALEVE [Suspect]
     Indication: DRUG USE FOR UNKNOWN INDICATION
  2. ASPIRIN [Suspect]
     Indication: MYOCARDIAL INFARCTION
     Dosage: TOTAL DAILY DOSE: 81 MG  UNIT DOSE: 81 MG
     Dates: start: 20070415
  3. PLAVIX [Suspect]
     Indication: MYOCARDIAL INFARCTION
     Dosage: TOTAL DAILY DOSE: 75 MG  UNIT DOSE: 75 MG
     Dates: start: 20070415
  4. METHOXY POLYETHYLENE GLYCOL-EPOETIN BETA [Suspect]
     Indication: NEPHROGENIC ANAEMIA
     Route: 042
     Dates: start: 20071024
  5. FUROSEMIDE [Concomitant]
     Dates: start: 20070531
  6. SEVELAMER [Concomitant]
     Dates: start: 20070531
  7. CALCIUM CARBONATE [Concomitant]
     Dates: start: 20070615
  8. SALBUTAMOL SULFATE [Concomitant]
     Dates: start: 20070706
  9. VENOFER [Concomitant]
     Dates: start: 20070912
  10. REPLAVITE [Concomitant]
  11. AMLODIPINE [Concomitant]
  12. CLONAZEPAM [Concomitant]
     Dates: start: 20071015
  13. LYRICA [Concomitant]
     Dates: start: 20071015

REACTIONS (2)
  - HAEMATEMESIS [None]
  - HAEMOPTYSIS [None]
